FAERS Safety Report 9817937 (Version 2)
Quarter: 2014Q1

REPORT INFORMATION
  Report Type: Report from Study
  Country: BR (occurrence: BR)
  Receive Date: 20140115
  Receipt Date: 20140211
  Transmission Date: 20141002
  Serious: Yes (Death, Hospitalization, Other)
  Sender: FDA-Public Use
  Company Number: PHHY2014BR003576

PATIENT
  Sex: Female
  Weight: 76 kg

DRUGS (6)
  1. EXELON PATCH [Suspect]
     Indication: DEMENTIA ALZHEIMER^S TYPE
     Dosage: 9.5 MG, (18MG/10 CM2), DAILY
     Route: 062
     Dates: start: 2008, end: 20131024
  2. NEOTIAPIM [Suspect]
     Indication: ANXIETY
     Dosage: 1 DF, QD (100 MG)
     Route: 048
     Dates: end: 201309
  3. NEOTIAPIM [Suspect]
     Dosage: 1 DF, QD (25 MG)
     Route: 048
     Dates: start: 201309, end: 20131024
  4. BUFFERIN CARDIO [Suspect]
     Indication: STENT PLACEMENT
     Dosage: 1 DF, DAILY
     Route: 048
     Dates: end: 20131024
  5. SOMALGIN [Suspect]
     Indication: STENT PLACEMENT
     Dosage: 1 DF, DAILY
     Route: 048
     Dates: end: 20131024
  6. PANTOPRAZOLE [Concomitant]
     Indication: RETCHING
     Dosage: 1 DF, QD FASTING IN THE MORNING
     Route: 048
     Dates: end: 20131024

REACTIONS (4)
  - Haemorrhagic stroke [Fatal]
  - Brain death [Fatal]
  - Hypertension [Fatal]
  - Diabetes mellitus [Fatal]
